FAERS Safety Report 16156085 (Version 8)
Quarter: 2019Q4

REPORT INFORMATION
  Report Type: Report from Study
  Country: FR (occurrence: FR)
  Receive Date: 20190404
  Receipt Date: 20191121
  Transmission Date: 20200122
  Serious: Yes (Hospitalization)
  Sender: FDA-Public Use
  Company Number: FR-ROCHE-2294839

PATIENT
  Age: 77 Year
  Sex: Male
  Weight: 63 kg

DRUGS (12)
  1. POLARAMINE [Concomitant]
     Active Substance: DEXCHLORPHENIRAMINE MALEATE
     Dosage: PRE MEDICATION DUE TO LAST IRR
     Route: 065
     Dates: start: 20190314, end: 20190314
  2. PARACETAMOL [Concomitant]
     Active Substance: ACETAMINOPHEN
     Indication: PYREXIA
     Route: 065
     Dates: start: 20190311, end: 20190312
  3. NERISONE [Concomitant]
     Active Substance: DIFLUCORTOLONE VALERATE
     Indication: RASH
     Dosage: 2 OTHER
     Route: 061
     Dates: start: 20190204, end: 20190329
  4. SOLU-MEDROL [Concomitant]
     Active Substance: METHYLPREDNISOLONE SODIUM SUCCINATE
     Dosage: PRE MEDICATION DUE TO LAST IRR
     Route: 065
     Dates: start: 20190314, end: 20190314
  5. PERFALGAN [Concomitant]
     Active Substance: ACETAMINOPHEN
     Dosage: PRE MEDICATION DUE TO LAST IRR
     Route: 065
     Dates: start: 20190228, end: 20190228
  6. COBIMETINIB. [Suspect]
     Active Substance: COBIMETINIB
     Indication: MALIGNANT MELANOMA
     Dosage: ON A 21 DAYS ON, 7 DAYS OFF SCHEDULE?MOST RECENT DOSE OF COBIMETINIB (20 MG) PRIOR TO ERYTHRODERMA O
     Route: 048
     Dates: start: 20181025
  7. ATEZOLIZUMAB. [Suspect]
     Active Substance: ATEZOLIZUMAB
     Indication: MALIGNANT MELANOMA
     Dosage: ON DAYS 1 AND 15 OF EACH 28-DAY CYCLE?MOST RECENT DOSE OF ATEZOLIZUMAB (840 MG) PRIOR TO ERYTHRODERM
     Route: 042
     Dates: start: 20181025
  8. XARELTO [Concomitant]
     Active Substance: RIVAROXABAN
     Indication: ATRIAL FIBRILLATION
     Route: 065
     Dates: start: 2015
  9. DERMOVAL [CLOBETASOL PROPIONATE] [Concomitant]
     Active Substance: CLOBETASOL PROPIONATE
     Indication: RASH
     Dosage: 1 OTHER
     Route: 061
     Dates: start: 20190215, end: 20190228
  10. SOLU-MEDROL [Concomitant]
     Active Substance: METHYLPREDNISOLONE SODIUM SUCCINATE
     Dosage: PRE MEDICATION DUE TO LAST IRR
     Route: 065
     Dates: start: 20190228, end: 20190228
  11. PERFALGAN [Concomitant]
     Active Substance: ACETAMINOPHEN
     Dosage: PRE MEDICATION DUE TO LAST IRR
     Route: 065
     Dates: start: 20190314, end: 20190314
  12. POLARAMINE [Concomitant]
     Active Substance: DEXCHLORPHENIRAMINE MALEATE
     Dosage: PRE MEDICATION DUE TO LAST IRR
     Route: 065
     Dates: start: 20190228, end: 20190228

REACTIONS (1)
  - Dermatitis exfoliative generalised [Recovered/Resolved]

NARRATIVE: CASE EVENT DATE: 20190327
